FAERS Safety Report 13358972 (Version 1)
Quarter: 2017Q1

REPORT INFORMATION
  Report Type: Spontaneous
  Country: US (occurrence: US)
  Receive Date: 20170322
  Receipt Date: 20170322
  Transmission Date: 20170429
  Serious: Yes (Other)
  Sender: FDA-Public Use
  Company Number: US-PROCTER_AND_GAMBLE-GS17029187

PATIENT

DRUGS (1)
  1. CREST PRO-HEALTH ADVANCED [Suspect]
     Active Substance: STANNOUS FLUORIDE
     Route: 002

REACTIONS (3)
  - Anaphylactic shock [Recovered/Resolved]
  - Documented hypersensitivity to administered product [Unknown]
  - Reaction to drug excipients [Recovered/Resolved]
